FAERS Safety Report 16111034 (Version 2)
Quarter: 2019Q2

REPORT INFORMATION
  Report Type: Spontaneous
  Country: US (occurrence: US)
  Receive Date: 20190325
  Receipt Date: 20190517
  Transmission Date: 20190711
  Serious: No
  Sender: FDA-Public Use
  Company Number: US-BIOGEN-2019BI00687985

PATIENT
  Age: 35 Year
  Sex: Male

DRUGS (3)
  1. AVONEX [Suspect]
     Active Substance: INTERFERON BETA-1A
     Indication: MULTIPLE SCLEROSIS
     Route: 050
     Dates: start: 20171110, end: 201901
  2. TYSABRI [Suspect]
     Active Substance: NATALIZUMAB
     Indication: MULTIPLE SCLEROSIS
     Dosage: INFUSED OVER 1 HOUR
     Route: 050
  3. AVONEX [Suspect]
     Active Substance: INTERFERON BETA-1A
     Route: 065
     Dates: end: 20190129

REACTIONS (9)
  - Irritability [Unknown]
  - Insomnia [Unknown]
  - Hypoaesthesia [Unknown]
  - Fatigue [Unknown]
  - Multiple sclerosis [Unknown]
  - Influenza like illness [Unknown]
  - Drug ineffective [Unknown]
  - Paraesthesia [Unknown]
  - Depression [Unknown]

NARRATIVE: CASE EVENT DATE: 20181029
